FAERS Safety Report 8852423 (Version 2)
Quarter: 2012Q4

REPORT INFORMATION
  Report Type: Spontaneous
  Country: GB (occurrence: None)
  Receive Date: 20121017
  Receipt Date: 20121022
  Transmission Date: 20130627
  Serious: Yes (Other)
  Sender: FDA-Public Use
  Company Number: INT_00132_2012

PATIENT
  Age: 74 Year
  Sex: Female

DRUGS (2)
  1. MEROPENEM [Suspect]
     Indication: MENINGITIS PNEUMOCOCCAL
     Dosage: (DF)
     Dates: start: 20120914
  2. LINEZOLID [Suspect]
     Indication: INFECTION
     Dosage: (DF)
     Dates: start: 20120914

REACTIONS (3)
  - Red blood cell count decreased [None]
  - Gastrointestinal haemorrhage [None]
  - Drug interaction [None]
